FAERS Safety Report 7401568-3 (Version None)
Quarter: 2011Q2

REPORT INFORMATION
  Report Type: 
  Country: None (occurrence: None)
  Receive Date: 20110408
  Receipt Date: 20110331
  Transmission Date: 20111010
  Serious: Yes (Hospitalization, Other)
  Sender: FDA-Public Use
  Company Number: US-BIOGENIDEC-2011BI005111

PATIENT
  Age: 62 Year
  Sex: Female

DRUGS (3)
  1. AVONEX [Suspect]
     Indication: MULTIPLE SCLEROSIS
     Route: 030
     Dates: start: 20071029
  2. UNKNOWN MEDICATION [Concomitant]
     Indication: NEUROGENIC BLADDER
  3. AVONEX [Suspect]
     Route: 030
     Dates: start: 20071029

REACTIONS (14)
  - FALL [None]
  - ORTHOSTATIC HYPOTENSION [None]
  - HYPERSENSITIVITY [None]
  - CONCUSSION [None]
  - MULTIPLE SCLEROSIS RELAPSE [None]
  - MULTIPLE SCLEROSIS [None]
  - LIP SWELLING [None]
  - TRANSIENT ISCHAEMIC ATTACK [None]
  - RENAL DISORDER [None]
  - CYSTITIS [None]
  - SWELLING FACE [None]
  - LIVER INJURY [None]
  - RENAL FAILURE [None]
  - ANXIETY [None]
